FAERS Safety Report 8943835 (Version 3)
Quarter: 2013Q1

REPORT INFORMATION
  Report Type: Spontaneous
  Country: CA (occurrence: CA)
  Receive Date: 20121204
  Receipt Date: 20130311
  Transmission Date: 20140127
  Serious: Yes (Death, Hospitalization)
  Sender: FDA-Public Use
  Company Number: PHHY2012CA109583

PATIENT
  Age: 81 Year
  Sex: Female

DRUGS (3)
  1. SANDOSTATIN LAR [Suspect]
     Indication: NEUROENDOCRINE TUMOUR
     Dosage: 30 MG, EVERY FOUR WEEKS
     Route: 030
     Dates: start: 20110201
  2. SANDOSTATIN LAR [Suspect]
     Dosage: 30 MG, EVERY FOUR WEEKS
     Route: 030
     Dates: end: 20121122
  3. WARFARIN [Concomitant]

REACTIONS (6)
  - Death [Fatal]
  - Contusion [Unknown]
  - General physical health deterioration [Unknown]
  - Blood urine present [Unknown]
  - Abdominal neoplasm [Unknown]
  - Metastases to liver [Unknown]
